FAERS Safety Report 8415107-1 (Version None)
Quarter: 2012Q2

REPORT INFORMATION
  Report Type: 
  Country: None (occurrence: None)
  Receive Date: 20120606
  Receipt Date: 20120528
  Transmission Date: 20120825
  Serious: Yes (Hospitalization)
  Sender: FDA-Public Use
  Company Number: JP-VERTEX PHARMACEUTICALS INC.-AE-2012-007990

PATIENT
  Age: 74 Year
  Sex: Female

DRUGS (5)
  1. TELAVIC (TELAPREVIR) [Suspect]
     Indication: HEPATITIS C
     Route: 048
     Dates: start: 20120411, end: 20120413
  2. PEGINTERFERON ALFA-2B [Concomitant]
     Route: 051
     Dates: start: 20120411
  3. RIBAVIRIN [Concomitant]
     Indication: HEPATITIS C
     Route: 048
     Dates: start: 20120411, end: 20120415
  4. URSO 250 [Concomitant]
     Route: 048
  5. TELAVIC (TELAPREVIR) [Suspect]
     Route: 048
     Dates: start: 20120414, end: 20120415

REACTIONS (1)
  - BLOOD CREATININE INCREASED [None]
